FAERS Safety Report 5034168-3 (Version None)
Quarter: 2006Q2

REPORT INFORMATION
  Report Type: 
  Country: None (occurrence: None)
  Receive Date: 20060621
  Receipt Date: 20060615
  Transmission Date: 20061013
  Serious: Yes (Hospitalization, Other)
  Sender: FDA-Public Use
  Company Number: FLX20060004

PATIENT
  Age: 49 Year
  Sex: Female

DRUGS (12)
  1. FLUOXETINE [Suspect]
     Dosage: 10MG DAILY PO
     Route: 048
  2. LEVOFLOXACIN [Suspect]
     Indication: PYELONEPHRITIS
     Dosage: SEE IMAGE
  3. LEVOFLOXACIN [Suspect]
     Indication: PYELONEPHRITIS
     Dosage: SEE IMAGE
  4. IMIPRAMINE [Suspect]
     Dosage: 50 MG QHS PO
     Route: 048
  5. HYDROCHLOROTHIAZIDE [Concomitant]
  6. GABAPENTIN [Concomitant]
  7. PROPRANOLOL ER [Concomitant]
  8. CARISPRODOL [Concomitant]
  9. MIRTAZAPINE [Concomitant]
  10. CEFTRIAXONE [Concomitant]
  11. LORATADINE/PSEUDOEPHEDRINE [Concomitant]
  12. FERROUS SULFATE TAB [Concomitant]

REACTIONS (5)
  - BLOOD CREATININE INCREASED [None]
  - CHEST DISCOMFORT [None]
  - DYSPNOEA [None]
  - ELECTROCARDIOGRAM QT CORRECTED INTERVAL PROLONGED [None]
  - HYPOKALAEMIA [None]
